FAERS Safety Report 6528361-8 (Version None)
Quarter: 2010Q1

REPORT INFORMATION
  Report Type: 
  Country: None (occurrence: None)
  Receive Date: 20100106
  Receipt Date: 20100104
  Transmission Date: 20100710
  Serious: Yes (Death)
  Sender: FDA-Public Use
  Company Number: PHEH2009US13306

PATIENT
  Sex: Male
  Weight: 59 kg

DRUGS (5)
  1. EXJADE [Suspect]
     Dosage: 1250 MG, QD
     Route: 048
     Dates: start: 20050506, end: 20091005
  2. SYNTHROID [Concomitant]
  3. ISOSORBIDE MONONITRATE [Concomitant]
  4. EFFEXOR [Concomitant]
  5. METFORMIN HYDROCHLORIDE [Concomitant]

REACTIONS (3)
  - CARDIAC FAILURE [None]
  - CHRONIC OBSTRUCTIVE PULMONARY DISEASE [None]
  - RENAL FAILURE [None]
